FAERS Safety Report 4354143-1 (Version None)
Quarter: 2004Q2

REPORT INFORMATION
  Report Type: 
  Country: None (occurrence: None)
  Receive Date: 20040503
  Receipt Date: 20040420
  Transmission Date: 20050107
  Serious: Yes (Hospitalization)
  Sender: FDA-Public Use
  Company Number: 2004-115435-NL

PATIENT
  Age: 87 Year
  Sex: Male

DRUGS (2)
  1. DANAPAROID SODIUM [Suspect]
     Dosage: DF; SUBCUTANEOUS
     Route: 058
     Dates: start: 20040224, end: 20040304
  2. HEPARIN -FRACTION, SODIUM SALT [Suspect]
     Dosage: 0.5 MG, SUBCUTANEOUS
     Route: 058
     Dates: start: 20040218, end: 20040224

REACTIONS (1)
  - HEPARIN-INDUCED THROMBOCYTOPENIA [None]
